FAERS Safety Report 15483928 (Version 1)
Quarter: 2018Q4

REPORT INFORMATION
  Report Type: Spontaneous
  Country: US (occurrence: US)
  Receive Date: 20181010
  Receipt Date: 20181010
  Transmission Date: 20190205
  Serious: Yes (Life-Threatening, Hospitalization)
  Sender: FDA-Public Use
  Company Number: None

PATIENT
  Age: 83 Year
  Sex: Female

DRUGS (1)
  1. TIZANIDINE. [Suspect]
     Active Substance: TIZANIDINE
     Indication: MUSCLE SPASMS

REACTIONS (6)
  - Abnormal behaviour [None]
  - Drug interaction [None]
  - Hypersensitivity [None]
  - Disorientation [None]
  - Blood pressure decreased [None]
  - Accidental overdose [None]

NARRATIVE: CASE EVENT DATE: 20180429
